FAERS Safety Report 7811109-4 (Version None)
Quarter: 2011Q4

REPORT INFORMATION
  Report Type: 
  Country: None (occurrence: None)
  Receive Date: 20111013
  Receipt Date: 20110928
  Transmission Date: 20120403
  Serious: Yes (Other)
  Sender: FDA-Public Use
  Company Number: PHHY2011US87444

PATIENT
  Age: 51 Year
  Sex: Female

DRUGS (6)
  1. RITUXIMAB [Concomitant]
     Dosage: 375 MG/M2
     Dates: start: 20101001
  2. PREDNISONE [Concomitant]
     Dosage: UNK UKN, UNK
  3. CYCLOSPORINE [Suspect]
     Indication: URTICARIA CHRONIC
     Dosage: UNK UKN, UNK
  4. ANTIHISTAMINES [Concomitant]
     Dosage: UNK UKN, UNK
  5. METHOTREXATE [Concomitant]
     Dosage: 15-25 MG/WK
     Route: 058
  6. MYCOPHENOLATE MOFETIL [Concomitant]
     Dosage: UNK UKN, UNK

REACTIONS (8)
  - GASTROINTESTINAL DISORDER [None]
  - VOMITING [None]
  - GASTROINTESTINAL OEDEMA [None]
  - URTICARIA CHRONIC [None]
  - DIARRHOEA [None]
  - NAUSEA [None]
  - ENTERITIS [None]
  - GASTRITIS [None]
